FAERS Safety Report 12077467 (Version 2)
Quarter: 2016Q1

REPORT INFORMATION
  Report Type: Spontaneous
  Country: TR (occurrence: TR)
  Receive Date: 20160215
  Receipt Date: 20160310
  Transmission Date: 20160526
  Serious: Yes (Other)
  Sender: FDA-Public Use
  Company Number: TR-PFIZER INC-2016072242

PATIENT
  Age: 45 Year
  Sex: Female

DRUGS (3)
  1. SALAZOPYRIN [Suspect]
     Active Substance: SULFASALAZINE
     Indication: ARTHRALGIA
     Dosage: 1 TABLET,2X/DAY
     Dates: start: 20160307
  2. SALAZOPYRIN [Suspect]
     Active Substance: SULFASALAZINE
     Indication: BACK PAIN
     Dosage: 1 TABLET, 2X/DAY
     Dates: start: 201510
  3. SALAZOPYRIN [Suspect]
     Active Substance: SULFASALAZINE
     Indication: RHEUMATIC DISORDER
     Dosage: 2 TABLETS, 2X/DAY

REACTIONS (11)
  - Paraesthesia [Not Recovered/Not Resolved]
  - Blood parathyroid hormone increased [Not Recovered/Not Resolved]
  - Suspected counterfeit product [Unknown]
  - Abdominal pain upper [Not Recovered/Not Resolved]
  - Eye swelling [Not Recovered/Not Resolved]
  - Renal pain [Not Recovered/Not Resolved]
  - Nausea [Not Recovered/Not Resolved]
  - Urinary tract infection [Not Recovered/Not Resolved]
  - Cough [Not Recovered/Not Resolved]
  - Headache [Not Recovered/Not Resolved]
  - Dysphagia [Not Recovered/Not Resolved]

NARRATIVE: CASE EVENT DATE: 201510
